FAERS Safety Report 8307007-2 (Version None)
Quarter: 2012Q2

REPORT INFORMATION
  Report Type: 
  Country: None (occurrence: None)
  Receive Date: 20120424
  Receipt Date: 20120417
  Transmission Date: 20120825
  Serious: Yes (Hospitalization, Disabling)
  Sender: FDA-Public Use
  Company Number: PHHO2012US003601

PATIENT
  Sex: Male

DRUGS (6)
  1. TKI258 [Suspect]
     Indication: NEOPLASM
     Dosage: 300 MG, QD
     Dates: start: 20111019, end: 20111026
  2. METOPROLOL TARTRATE [Suspect]
     Indication: PALPITATIONS
     Dosage: 12.5 MG, BID
     Dates: start: 20060101, end: 20111101
  3. METOPROLOL TARTRATE [Suspect]
     Dosage: 6.5 MG, BID
     Dates: start: 20111101
  4. METOPROLOL TARTRATE [Suspect]
     Dosage: 6.25 MG QAM, 12.5 MG QPM
     Dates: end: 20120226
  5. METOPROLOL TARTRATE [Suspect]
     Dosage: 6.25 MG AM AND 25 MG PM
     Dates: start: 20120226
  6. TKI258 [Suspect]
     Dosage: 500 MG, 5 DAYS ON AND 2 DAYS OFF
     Dates: start: 20111102, end: 20120226

REACTIONS (3)
  - HYPOTENSION [None]
  - DEHYDRATION [None]
  - MYOCARDIAL INFARCTION [None]
